FAERS Safety Report 25713710 (Version 1)
Quarter: 2025Q3

REPORT INFORMATION
  Report Type: 
  Country: CN (occurrence: CN)
  Receive Date: 20250822
  Receipt Date: 20250822
  Transmission Date: 20251021
  Serious: Yes (Hospitalization)
  Sender: JIANGSU HANSOH PHARMACEUTICAL GROUP CO., LTD.
  Company Number: CN-Hansoh-20252190015188

PATIENT
  Age: 67 Year
  Sex: Male
  Weight: 43 kg

DRUGS (4)
  1. VINORELBINE TARTRATE [Suspect]
     Active Substance: VINORELBINE TARTRATE
     Indication: Lung neoplasm malignant
     Dosage: 37MG,ONCE A WEEK
     Route: 041
     Dates: start: 20250708, end: 20250708
  2. VINORELBINE TARTRATE [Suspect]
     Active Substance: VINORELBINE TARTRATE
     Dosage: 37MG,ONCE A WEEK
     Route: 041
     Dates: start: 20250716, end: 20250716
  3. ENDOSTATIN [Suspect]
     Active Substance: ENDOSTATIN
     Indication: Lung neoplasm malignant
     Dosage: 150MG,QD
     Dates: start: 20250708, end: 20250708
  4. CISPLATIN [Suspect]
     Active Substance: CISPLATIN
     Indication: Lung neoplasm malignant
     Dosage: 30MG,QD
     Route: 041
     Dates: start: 20250708, end: 20250710

REACTIONS (1)
  - Renal impairment [Recovering/Resolving]

NARRATIVE: CASE EVENT DATE: 20250802
